FAERS Safety Report 7805345-0 (Version None)
Quarter: 2011Q4

REPORT INFORMATION
  Report Type: 
  Country: None (occurrence: None)
  Receive Date: 20111010
  Receipt Date: 20110930
  Transmission Date: 20120403
  Serious: Yes (Hospitalization)
  Sender: FDA-Public Use
  Company Number: CH-ASTRAZENECA-2011SE59202

PATIENT
  Age: 49 Year
  Sex: Female

DRUGS (31)
  1. SEROQUEL XR [Suspect]
     Route: 048
     Dates: start: 20110503
  2. CLOPIXOL [Concomitant]
     Dosage: 25-50 MG DAILY
     Route: 048
     Dates: start: 20110804, end: 20110810
  3. VALIUM [Concomitant]
     Route: 048
     Dates: start: 20110519, end: 20110520
  4. SEROQUEL XR [Suspect]
     Dosage: 800-1000 MG DAILY
     Route: 048
     Dates: start: 20110520, end: 20110616
  5. CLOPIXOL [Concomitant]
     Route: 048
     Dates: start: 20110712, end: 20110726
  6. SEROQUEL XR [Suspect]
     Dosage: 300-400 MG DAILY
     Route: 048
     Dates: start: 20110504, end: 20110509
  7. TEGRETOL [Concomitant]
     Route: 048
     Dates: start: 20110503
  8. SEROQUEL XR [Suspect]
     Route: 048
     Dates: start: 20110728
  9. SEROQUEL XR [Suspect]
     Route: 048
     Dates: start: 20110729
  10. DEPAKENE [Suspect]
     Dosage: 1000-2000 MG DAILY
     Route: 048
     Dates: start: 20110701, end: 20110711
  11. CLOPIXOL [Concomitant]
     Route: 048
     Dates: start: 20110608, end: 20110711
  12. CLOPIXOL [Concomitant]
     Route: 048
     Dates: start: 20110811, end: 20110816
  13. TEGRETOL [Concomitant]
     Route: 048
     Dates: end: 20110502
  14. VALIUM [Concomitant]
     Dosage: 20-30 MG DAILY
     Route: 048
     Dates: start: 20110427, end: 20110518
  15. SEROQUEL XR [Suspect]
     Indication: BIPOLAR DISORDER
     Route: 048
     Dates: start: 20110417, end: 20110427
  16. DEPAKENE [Suspect]
     Dosage: 1000-2000 MG DAILY
     Route: 048
     Dates: start: 20110511, end: 20110516
  17. DEPAKENE [Suspect]
     Dosage: 500-2000 MG DAILY
     Route: 048
     Dates: start: 20110731, end: 20110808
  18. TORSEMIDE [Concomitant]
     Route: 048
     Dates: start: 20110527
  19. KCL RET [Concomitant]
     Dosage: 2 DRG
     Dates: start: 20110601, end: 20110617
  20. TEGRETOL [Concomitant]
     Dosage: 200-400 MG DAILY
     Route: 048
     Dates: start: 20110712, end: 20110731
  21. SEROQUEL XR [Suspect]
     Route: 048
     Dates: start: 20110514, end: 20110519
  22. SEROQUEL XR [Suspect]
     Dosage: 400-600 MG DAILY
     Route: 048
     Dates: start: 20110617, end: 20110630
  23. DEPAKENE [Suspect]
     Route: 048
     Dates: start: 20110517, end: 20110630
  24. DEPAKENE [Suspect]
     Route: 048
     Dates: start: 20110809
  25. CLOPIXOL [Concomitant]
     Route: 048
     Dates: end: 20110511
  26. CLOPIXOL [Concomitant]
     Route: 048
     Dates: start: 20110727, end: 20110803
  27. METOPROLOL SUCCINATE [Concomitant]
     Route: 048
     Dates: start: 20110602
  28. TORSEMIDE [Concomitant]
     Dosage: 10-20 MG DAILY
     Route: 048
     Dates: start: 20110505, end: 20110526
  29. SEROQUEL XR [Suspect]
     Route: 048
     Dates: start: 20110428, end: 20110502
  30. SEROQUEL XR [Suspect]
     Dosage: 600-900 MG DAILY
     Route: 048
     Dates: start: 20110510, end: 20110513
  31. PANTOPRAZOLE SODIUM [Concomitant]
     Dosage: 20-40 MG DAILY
     Route: 048
     Dates: end: 20110502

REACTIONS (4)
  - OEDEMA [None]
  - HYPERTHERMIA [None]
  - ERYTHEMA [None]
  - WEIGHT INCREASED [None]
